FAERS Safety Report 6223314-1 (Version None)
Quarter: 2009Q2

REPORT INFORMATION
  Report Type: 
  Country: None (occurrence: None)
  Receive Date: 20090609
  Receipt Date: 20090601
  Transmission Date: 20091009
  Serious: Yes (Hospitalization)
  Sender: FDA-Public Use
  Company Number: GXKR2009IT06441

PATIENT
  Sex: Female

DRUGS (1)
  1. CLARITHROMYCIN [Suspect]

REACTIONS (2)
  - ATAXIA [None]
  - DIZZINESS [None]
